FAERS Safety Report 9772901 (Version 2)
Quarter: 2014Q1

REPORT INFORMATION
  Report Type: Spontaneous
  Country: SE (occurrence: SE)
  Receive Date: 20131219
  Receipt Date: 20140220
  Transmission Date: 20141002
  Serious: Yes (Other)
  Sender: FDA-Public Use
  Company Number: SE-BAYER-2013-153829

PATIENT
  Age: 25 Year
  Sex: Female
  Weight: 70 kg

DRUGS (1)
  1. MIRENA [Suspect]
     Indication: CONTRACEPTION
     Dosage: 20 MCG/24HR, CONT
     Route: 015
     Dates: start: 201302, end: 201311

REACTIONS (9)
  - Ovarian cyst [Unknown]
  - Penile pain [Unknown]
  - Hypomenorrhoea [Unknown]
  - Nausea [Unknown]
  - Pain [Unknown]
  - Ovarian cyst ruptured [Unknown]
  - Abdominal pain lower [Unknown]
  - Mood swings [Unknown]
  - Breast swelling [Unknown]
